FAERS Safety Report 9485180 (Version 1)
Quarter: 2013Q3

REPORT INFORMATION
  Report Type: Spontaneous
  Country: US (occurrence: US)
  Receive Date: 20130828
  Receipt Date: 20130828
  Transmission Date: 20140515
  Serious: Yes (Death, Other)
  Sender: FDA-Public Use
  Company Number: US-BAYER-2013-102361

PATIENT
  Age: 17 Year
  Sex: Male

DRUGS (1)
  1. BAYER GENUINE ASPIRIN ORIGINAL STRENGTH [Suspect]
     Indication: HEADACHE

REACTIONS (8)
  - Subdural haematoma [Fatal]
  - Unresponsive to stimuli [Fatal]
  - Loss of consciousness [Fatal]
  - Pain [Fatal]
  - Circulatory collapse [Fatal]
  - Concussion [None]
  - Post concussion syndrome [None]
  - Head injury [None]
